FAERS Safety Report 8106435-8 (Version None)
Quarter: 2012Q1

REPORT INFORMATION
  Report Type: 
  Country: None (occurrence: None)
  Receive Date: 20120130
  Receipt Date: 20120118
  Transmission Date: 20120608
  Serious: Yes (Hospitalization)
  Sender: FDA-Public Use
  Company Number: AUR-APL-2012-00628

PATIENT
  Age: 69 Year
  Sex: Male

DRUGS (19)
  1. RAMIPRIL [Suspect]
     Indication: MYOCARDIAL ISCHAEMIA
     Dosage: 1.25 MG (1.25 MG, 1 IN 1 D), ORAL
     Route: 048
     Dates: start: 20110415, end: 20110507
  2. AUGMENTIN '125' [Suspect]
     Indication: BRONCHITIS
     Dosage: ORAL
     Route: 048
     Dates: start: 20110331, end: 20110408
  3. CLARITHROMYCIN [Concomitant]
  4. PLAVIX [Suspect]
     Indication: ACUTE CORONARY SYNDROME
     Dosage: 75 MG (75 MG, 1 IN 1 D), ORAL
     Route: 048
     Dates: start: 20110415, end: 20110416
  5. ARIXTRA [Suspect]
     Indication: ACUTE CORONARY SYNDROME
     Dosage: 2.5 ML (2.5 ML, 1 IN 1 D), SUBCUTANEOUS
     Route: 058
     Dates: start: 20110415, end: 20110416
  6. LEXOMIL (BROMAZEPAM) [Concomitant]
  7. ACETAMINOPHEN [Concomitant]
  8. BISOPROLOL FUMARATE [Concomitant]
  9. PERMIXON (SERENOA [Concomitant]
  10. BECONASE [Concomitant]
  11. ASPIRIN [Concomitant]
  12. PREDNISOLONE [Concomitant]
  13. VENTOLIN [Concomitant]
  14. SULFARLEM (SULFARLEM-CHOLINE) [Concomitant]
  15. SIMVASTATIN [Suspect]
     Indication: HYPERCHOLESTEROLAEMIA
     Dosage: 20 MG (20 MG,  IN 1 D), ORAL
     Route: 048
     Dates: start: 20110416, end: 20110506
  16. REPAGLINIDE [Concomitant]
  17. AVODART [Concomitant]
  18. EZETIMIBE [Concomitant]
  19. VASTAREL (TRIEZADINE HYDROCHLORIDE) [Concomitant]

REACTIONS (3)
  - CYTOLYTIC HEPATITIS [None]
  - MYOPERICARDITIS [None]
  - DRUG RASH WITH EOSINOPHILIA AND SYSTEMIC SYMPTOMS [None]
